FAERS Safety Report 15611160 (Version 1)
Quarter: 2018Q4

REPORT INFORMATION
  Report Type: Spontaneous
  Country: US (occurrence: US)
  Receive Date: 20181113
  Receipt Date: 20181113
  Transmission Date: 20190205
  Serious: No
  Sender: FDA-Public Use
  Company Number: US-ASTRAZENECA-2018SF44412

PATIENT
  Age: 63 Year
  Sex: Female
  Weight: 95.2 kg

DRUGS (4)
  1. SEROQUEL [Suspect]
     Active Substance: QUETIAPINE FUMARATE
     Route: 048
     Dates: start: 2017
  2. NEURONTIN [Suspect]
     Active Substance: GABAPENTIN
     Dosage: GABAPENTIN, 300 MG, FOUR TIMES DAILY
     Route: 048
     Dates: start: 20170222
  3. NEURONTIN [Suspect]
     Active Substance: GABAPENTIN
     Route: 048
  4. LOVASTATIN. [Concomitant]
     Active Substance: LOVASTATIN
     Dosage: 20.0MG UNKNOWN
     Dates: start: 2014

REACTIONS (6)
  - Feeling abnormal [Unknown]
  - Well educated [Unknown]
  - Initial insomnia [Unknown]
  - Drug ineffective [Unknown]
  - Confusional state [Unknown]
  - Gait disturbance [Unknown]
